FAERS Safety Report 14476268 (Version 2)
Quarter: 2019Q2

REPORT INFORMATION
  Report Type: Spontaneous
  Country: US (occurrence: US)
  Receive Date: 20180201
  Receipt Date: 20190613
  Transmission Date: 20190711
  Serious: No
  Sender: FDA-Public Use
  Company Number: US-SA-2017SA255959

PATIENT
  Age: 72 Year
  Sex: Male

DRUGS (1)
  1. PRALUENT [Suspect]
     Active Substance: ALIROCUMAB
     Indication: TYPE IIA HYPERLIPIDAEMIA
     Dosage: UNK UNK,UNK
     Route: 058

REACTIONS (4)
  - Sputum increased [Unknown]
  - Therapeutic response decreased [Unknown]
  - Chronic obstructive pulmonary disease [Unknown]
  - Choking sensation [Unknown]
